FAERS Safety Report 6599987-0 (Version None)
Quarter: 2010Q1

REPORT INFORMATION
  Report Type: 
  Country: None (occurrence: None)
  Receive Date: 20100217
  Receipt Date: 20100204
  Transmission Date: 20100710
  Serious: Yes (Other)
  Sender: FDA-Public Use
  Company Number: 230113J09CAN

PATIENT
  Age: 39 Year
  Sex: Female

DRUGS (4)
  1. REBIF [Suspect]
     Indication: RELAPSING-REMITTING MULTIPLE SCLEROSIS
     Dosage: 50%, 3 IN 1 WEEKS
     Dates: start: 20090929
  2. PARACETAMOL [Concomitant]
  3. APO-AMYTRIPTILLINE (AMITRIPTYLLINE HYDROCHLORIDE) [Concomitant]
  4. TYLENOL [Concomitant]

REACTIONS (2)
  - HEPATIC CYST [None]
  - MYALGIA [None]
